FAERS Safety Report 9846538 (Version 1)
Quarter: 2014Q1

REPORT INFORMATION
  Report Type: Spontaneous
  Country: US (occurrence: US)
  Receive Date: 20140127
  Receipt Date: 20140127
  Transmission Date: 20141002
  Serious: Yes (Death, Other)
  Sender: FDA-Public Use
  Company Number: US-GILEAD-2014-0093019

PATIENT
  Age: 56 Year
  Sex: Female

DRUGS (8)
  1. LETAIRIS [Suspect]
     Indication: PULMONARY HYPERTENSION
     Dosage: 10 MG, QD
     Route: 048
     Dates: start: 20131008, end: 20140108
  2. EFFEXOR [Concomitant]
  3. ABILIFY [Concomitant]
  4. METFORMIN [Concomitant]
  5. LIPITOR [Concomitant]
  6. LEVOTHYROXINE [Concomitant]
  7. PERCOCET                           /00867901/ [Concomitant]
  8. CENTRUM SILVER                     /07431401/ [Concomitant]

REACTIONS (1)
  - Death [Fatal]
